FAERS Safety Report 9621031 (Version 2)
Quarter: 2013Q4

REPORT INFORMATION
  Report Type: Report from Study
  Country: AT (occurrence: AT)
  Receive Date: 20131015
  Receipt Date: 20131015
  Transmission Date: 20140711
  Serious: Yes (Hospitalization, Disabling)
  Sender: FDA-Public Use
  Company Number: PHHY2013AT094518

PATIENT
  Sex: Female
  Weight: 80 kg

DRUGS (13)
  1. TASIGNA [Suspect]
     Dosage: 400 MG, BID
     Dates: start: 20080218
  2. SINTROM [Concomitant]
  3. ASS [Concomitant]
     Dosage: 100 MG, BID
  4. CAL-D-VITA [Concomitant]
  5. LYRICA [Concomitant]
     Dosage: 75 MG, BID
  6. SELOKEN [Concomitant]
     Dosage: 47.5 MG, DAILY
  7. SEDACORON [Concomitant]
     Dosage: 200 MG, DAILY
  8. DIGIMERCK [Concomitant]
     Dosage: 0.07 MG, DAILY
  9. LASIX [Concomitant]
     Dosage: 30 MG
  10. ZOMETA [Concomitant]
     Dosage: 4 MG, Q3M
  11. PANTOPRAZOL [Concomitant]
  12. SAROTEN [Concomitant]
     Dosage: 25 MG, DAILY
  13. BISPHOSPHONATES [Concomitant]

REACTIONS (3)
  - No therapeutic response [Not Recovered/Not Resolved]
  - Peripheral arterial occlusive disease [Unknown]
  - Concomitant disease progression [Unknown]
